FAERS Safety Report 9521894 (Version 1)
Quarter: 2013Q3

REPORT INFORMATION
  Report Type: Spontaneous
  Country: AR (occurrence: AR)
  Receive Date: 20130913
  Receipt Date: 20130913
  Transmission Date: 20140515
  Serious: Yes (Death, Hospitalization)
  Sender: FDA-Public Use
  Company Number: AR-AMGEN-ARGSP2013064102

PATIENT
  Age: 61 Year
  Sex: Female

DRUGS (1)
  1. ENBREL [Suspect]
     Indication: RHEUMATOID ARTHRITIS
     Dosage: 25 MG, Q2MO
     Route: 065
     Dates: start: 20070101

REACTIONS (6)
  - Cardio-respiratory arrest [Fatal]
  - Dyspnoea [Unknown]
  - Respiratory disorder [Unknown]
  - Dry mouth [Unknown]
  - Dry eye [Unknown]
  - Lung disorder [Unknown]
